FAERS Safety Report 17527056 (Version 3)
Quarter: 2020Q1

REPORT INFORMATION
  Report Type: Spontaneous
  Country: US (occurrence: US)
  Receive Date: 20200311
  Receipt Date: 20200318
  Transmission Date: 20200409
  Serious: No
  Sender: FDA-Public Use
  Company Number: US-PFIZER INC-2020104334

PATIENT
  Age: 92 Year
  Sex: Male
  Weight: 77 kg

DRUGS (4)
  1. ADVIL [Suspect]
     Active Substance: IBUPROFEN
     Indication: ARTHRALGIA
     Dosage: 200 MG, 2X/DAY
     Route: 048
  2. ADVIL [Suspect]
     Active Substance: IBUPROFEN
     Indication: SLEEP DISORDER
  3. COZAAR [Concomitant]
     Active Substance: LOSARTAN POTASSIUM
     Indication: HYPERTENSION
     Dosage: 1 DF, DAILY
     Route: 048
  4. TOPROL XL [Concomitant]
     Active Substance: METOPROLOL SUCCINATE
     Indication: HYPERTENSION
     Dosage: 1 DF, DAILY
     Route: 048

REACTIONS (1)
  - Rash [Unknown]
